FAERS Safety Report 8515254-X (Version None)
Quarter: 2012Q3

REPORT INFORMATION
  Report Type: 
  Country: None (occurrence: None)
  Receive Date: 20120717
  Receipt Date: 20120709
  Transmission Date: 20120928
  Serious: Yes (Death, Hospitalization)
  Sender: FDA-Public Use
  Company Number: US-009507513-2012SP027418

PATIENT

DRUGS (1)
  1. NUVARING [Suspect]
     Indication: CONTRACEPTION
     Dosage: UNK
     Dates: start: 20030318, end: 20100528

REACTIONS (15)
  - CHOLELITHIASIS [None]
  - HELICOBACTER INFECTION [None]
  - CHOLECYSTITIS ACUTE [None]
  - DEEP VEIN THROMBOSIS [None]
  - EYE PAIN [None]
  - OESOPHAGITIS [None]
  - HEPATIC STEATOSIS [None]
  - NEPHROTIC SYNDROME [None]
  - MIGRAINE [None]
  - PROTEINURIA [None]
  - HEADACHE [None]
  - UNINTENDED PREGNANCY [None]
  - GASTROINTESTINAL DISORDER [None]
  - MATERNAL EXPOSURE DURING PREGNANCY [None]
  - HYPERTENSION [None]
